FAERS Safety Report 24767531 (Version 2)
Quarter: 2025Q1

REPORT INFORMATION
  Report Type: Spontaneous
  Country: US (occurrence: US)
  Receive Date: 20241223
  Receipt Date: 20250212
  Transmission Date: 20250408
  Serious: Yes (Hospitalization)
  Sender: INCYTE
  Company Number: US-EVENT-000947

PATIENT

DRUGS (1)
  1. OPZELURA [Suspect]
     Active Substance: RUXOLITINIB PHOSPHATE
     Indication: Vitiligo
     Dosage: 1.5 PERCENT, BID (APPLY TO AFFECTED AREA(S) TWICE DAILY AS DIRECTED)
     Route: 065
     Dates: start: 202407

REACTIONS (3)
  - Hypertension [Unknown]
  - Skin discolouration [Unknown]
  - Drug effect less than expected [Unknown]
